FAERS Safety Report 7638581-7 (Version None)
Quarter: 2011Q3

REPORT INFORMATION
  Report Type: 
  Country: None (occurrence: None)
  Receive Date: 20110727
  Receipt Date: 20110718
  Transmission Date: 20111222
  Serious: Yes (Other)
  Sender: FDA-Public Use
  Company Number: PT-ASTELLAS-2011US004251

PATIENT
  Age: 55 Year
  Sex: Female

DRUGS (1)
  1. ERLOTINIB HYDROCHLORIDE [Suspect]
     Indication: NEOPLASM MALIGNANT
     Dosage: UNK
     Route: 048

REACTIONS (8)
  - HAIR GROWTH ABNORMAL [None]
  - RASH PUSTULAR [None]
  - PARONYCHIA [None]
  - HAIR TEXTURE ABNORMAL [None]
  - ALOPECIA [None]
  - TRICHOMEGALY [None]
  - PYOGENIC GRANULOMA [None]
  - TRICHIASIS [None]
